FAERS Safety Report 23276679 (Version 2)
Quarter: 2023Q4

REPORT INFORMATION
  Report Type: Spontaneous
  Country: US (occurrence: US)
  Receive Date: 20231208
  Receipt Date: 20231215
  Transmission Date: 20240110
  Serious: Yes (Other)
  Sender: FDA-Public Use
  Company Number: US-PFIZER INC-202300435679

PATIENT
  Sex: Female

DRUGS (1)
  1. PAXLOVID [Suspect]
     Active Substance: NIRMATRELVIR\RITONAVIR
     Indication: COVID-19 treatment
     Dosage: [NIRMATRELVIR 150 MG]/[RITONAVIR 100 MG]; 2X/DAY
     Dates: start: 20231204

REACTIONS (7)
  - Dehydration [Unknown]
  - Dysstasia [Unknown]
  - Gait inability [Unknown]
  - Night sweats [Unknown]
  - Pyrexia [Unknown]
  - Dizziness postural [Unknown]
  - Taste disorder [Unknown]

NARRATIVE: CASE EVENT DATE: 20231204
